FAERS Safety Report 16608323 (Version 1)
Quarter: 2019Q3

REPORT INFORMATION
  Report Type: Spontaneous
  Country: US (occurrence: US)
  Receive Date: 20190722
  Receipt Date: 20190722
  Transmission Date: 20191004
  Serious: Yes (Hospitalization, Other)
  Sender: FDA-Public Use
  Company Number: US-CURRAX PHARMACEUTICALS LLC-US-2019PER000096

PATIENT
  Age: 52 Year
  Sex: Female

DRUGS (1)
  1. HYDROCODONE BITARTRATE. [Suspect]
     Active Substance: HYDROCODONE BITARTRATE
     Indication: PRODUCT USED FOR UNKNOWN INDICATION
     Dosage: UNK

REACTIONS (4)
  - Drug abuse [Unknown]
  - Acute respiratory failure [Recovered/Resolved]
  - Hypersensitivity pneumonitis [Recovered/Resolved]
  - Incorrect route of product administration [Unknown]
